FAERS Safety Report 23988504 (Version 1)
Quarter: 2024Q2

REPORT INFORMATION
  Report Type: Spontaneous
  Country: US (occurrence: US)
  Receive Date: 20240619
  Receipt Date: 20240619
  Transmission Date: 20240716
  Serious: No
  Sender: FDA-Public Use
  Company Number: US-TEVA-VS-3208785

PATIENT
  Age: 40 Year
  Sex: Female

DRUGS (1)
  1. AUSTEDO XR [Suspect]
     Active Substance: DEUTETRABENAZINE
     Indication: Tardive dyskinesia
     Dosage: AUSTEDO XR 24MG TABLETS, TAKE 2 TABLETS EVERY EVENING WITH AUSTEDO XR 6MG TABLETS
     Route: 065

REACTIONS (1)
  - Product use issue [Unknown]
